FAERS Safety Report 9338525 (Version 1)
Quarter: 2013Q2

REPORT INFORMATION
  Report Type: Report from Study
  Country: US (occurrence: US)
  Receive Date: 20130610
  Receipt Date: 20130610
  Transmission Date: 20140414
  Serious: Yes (Hospitalization, Other)
  Sender: FDA-Public Use
  Company Number: US-ROCHE-1232638

PATIENT
  Age: 40 Year
  Sex: Female

DRUGS (1)
  1. RITUXAN [Suspect]
     Indication: B-CELL LYMPHOMA
     Route: 042

REACTIONS (11)
  - Fall [Not Recovered/Not Resolved]
  - Kidney infection [Unknown]
  - Depression [Not Recovered/Not Resolved]
  - Quality of life decreased [Not Recovered/Not Resolved]
  - Arthralgia [Not Recovered/Not Resolved]
  - Asthenia [Not Recovered/Not Resolved]
  - Dyspnoea [Not Recovered/Not Resolved]
  - Cough [Not Recovered/Not Resolved]
  - Feeling of body temperature change [Not Recovered/Not Resolved]
  - Abasia [Recovered/Resolved]
  - Fibromyalgia [Unknown]
